FAERS Safety Report 6202447-X (Version None)
Quarter: 2009Q2

REPORT INFORMATION
  Report Type: 
  Country: None (occurrence: None)
  Receive Date: 20090521
  Receipt Date: 20090521
  Transmission Date: 20091009
  Serious: Yes (Hospitalization)
  Sender: FDA-Public Use
  Company Number: None

PATIENT
  Age: 82 Year
  Sex: Male

DRUGS (1)
  1. NAPROXEN [Suspect]
     Indication: PAIN
     Dosage: 375 MG BID PO
     Route: 048
     Dates: start: 20050420, end: 20080917

REACTIONS (3)
  - DIZZINESS [None]
  - FAECES DISCOLOURED [None]
  - GASTRIC HAEMORRHAGE [None]
